FAERS Safety Report 21499434 (Version 1)
Quarter: 2022Q4

REPORT INFORMATION
  Report Type: Spontaneous
  Country: US (occurrence: None)
  Receive Date: 20221024
  Receipt Date: 20221024
  Transmission Date: 20230113
  Serious: No
  Sender: FDA-Public Use
  Company Number: US-Eisai Medical Research-EC-2022-123962

PATIENT
  Age: 65 Year
  Sex: Female
  Weight: 70.370 kg

DRUGS (2)
  1. FYCOMPA [Suspect]
     Active Substance: PERAMPANEL
     Indication: Seizure
     Route: 048
     Dates: start: 2020
  2. FYCOMPA [Suspect]
     Active Substance: PERAMPANEL
     Route: 048

REACTIONS (7)
  - Feeling drunk [Unknown]
  - Daydreaming [Unknown]
  - Coordination abnormal [Unknown]
  - Balance disorder [Unknown]
  - Fatigue [Unknown]
  - Dysphonia [Unknown]
  - Vision blurred [Unknown]
